FAERS Safety Report 4444031-4 (Version None)
Quarter: 2004Q3

REPORT INFORMATION
  Report Type: 
  Country: None (occurrence: None)
  Receive Date: 20040729
  Receipt Date: 20040205
  Transmission Date: 20050211
  Serious: Yes (Other)
  Sender: FDA-Public Use
  Company Number: US-JNJFOC-20031105255

PATIENT
  Age: 55 Year
  Sex: Female

DRUGS (3)
  1. RISPERDAL [Suspect]
     Indication: PSYCHOTIC DISORDER
     Dosage: 4 MG, 1 IN1 DAY, ORAL
     Route: 048
     Dates: start: 19990101, end: 19990101
  2. ELAVIL [Concomitant]
  3. AMBIEN [Concomitant]

REACTIONS (5)
  - DIABETES MELLITUS [None]
  - DYSPHAGIA [None]
  - HYPERHIDROSIS [None]
  - MASTICATION DISORDER [None]
  - MUSCLE TWITCHING [None]
